FAERS Safety Report 12197998 (Version 2)
Quarter: 2016Q2

REPORT INFORMATION
  Report Type: Spontaneous
  Country: US (occurrence: US)
  Receive Date: 20160322
  Receipt Date: 20160429
  Transmission Date: 20160815
  Serious: Yes (Other)
  Sender: FDA-Public Use
  Company Number: US-JNJFOC-20160209966

PATIENT
  Sex: Female
  Weight: 52.16 kg

DRUGS (1)
  1. TOPAMAX [Suspect]
     Active Substance: TOPIRAMATE
     Indication: COMPLEX PARTIAL SEIZURES
     Route: 048

REACTIONS (1)
  - Seizure [Recovered/Resolved]
